FAERS Safety Report 14563772 (Version 1)
Quarter: 2018Q1

REPORT INFORMATION
  Report Type: Spontaneous
  Country: US (occurrence: US)
  Receive Date: 20180222
  Receipt Date: 20180222
  Transmission Date: 20180509
  Serious: No
  Sender: FDA-Public Use
  Company Number: US-AMAG PHARMACEUTICALS, INC.-AMAG201800064

PATIENT

DRUGS (6)
  1. VALIUM [Concomitant]
     Active Substance: DIAZEPAM
     Indication: PELVIC FLOOR MUSCLE WEAKNESS
  2. INTRAROSA [Suspect]
     Active Substance: PRASTERONE
     Indication: CYSTITIS INTERSTITIAL
     Dosage: 6.5 MG, QHS
     Route: 067
     Dates: start: 20180102
  3. VALIUM [Concomitant]
     Active Substance: DIAZEPAM
     Indication: ANXIETY
     Dosage: 2-10 MG AT NIGHT AND AS NEEDED
     Route: 065
  4. RECLAST [Concomitant]
     Active Substance: ZOLEDRONIC ACID
     Indication: OSTEOPOROSIS
     Dosage: ONCE A YEAR
     Route: 041
  5. INTRAROSA [Suspect]
     Active Substance: PRASTERONE
     Indication: PELVIC FLOOR MUSCLE WEAKNESS
  6. VITAMIN D2 [Concomitant]
     Active Substance: ERGOCALCIFEROL
     Indication: SUPPLEMENTATION THERAPY
     Dosage: 1.25 MG, WEEKLY
     Route: 065
     Dates: start: 2017

REACTIONS (2)
  - Drug administration error [Unknown]
  - Off label use [Unknown]

NARRATIVE: CASE EVENT DATE: 20180102
